FAERS Safety Report 12917427 (Version 6)
Quarter: 2022Q1

REPORT INFORMATION
  Report Type: Spontaneous
  Country: US (occurrence: US)
  Receive Date: 20161107
  Receipt Date: 20220126
  Transmission Date: 20220423
  Serious: No
  Sender: FDA-Public Use
  Company Number: US-PFIZER INC-2016514720

PATIENT
  Age: 42 Year
  Sex: Female
  Weight: 97 kg

DRUGS (2)
  1. LYRICA [Suspect]
     Active Substance: PREGABALIN
     Indication: Fibromyalgia
     Dosage: 300 MG, 2X/DAY
     Route: 048
  2. LYRICA [Suspect]
     Active Substance: PREGABALIN
     Dosage: 300 MG, 3X/DAY

REACTIONS (8)
  - Intentional product misuse [Unknown]
  - Prescribed overdose [Unknown]
  - Drug withdrawal syndrome [Recovered/Resolved]
  - Headache [Unknown]
  - Chills [Unknown]
  - Hypoaesthesia [Unknown]
  - Paraesthesia [Unknown]
  - Hyperhidrosis [Unknown]

NARRATIVE: CASE EVENT DATE: 20180101
